FAERS Safety Report 25382105 (Version 1)
Quarter: 2025Q2

REPORT INFORMATION
  Report Type: Spontaneous
  Country: US (occurrence: US)
  Receive Date: 20250531
  Receipt Date: 20250531
  Transmission Date: 20250716
  Serious: Yes (Other)
  Sender: MSN LABORATORIES PRIVATE LIMITED
  Company Number: US-MSNLABS-2025MSNLIT01289

PATIENT

DRUGS (12)
  1. PACLITAXEL [Suspect]
     Active Substance: PACLITAXEL
     Indication: Invasive ductal breast carcinoma
     Dosage: (80 MG/M2) FOR 12 WEEKS
     Route: 065
  2. PACLITAXEL [Suspect]
     Active Substance: PACLITAXEL
     Indication: Oestrogen receptor assay negative
  3. PACLITAXEL [Suspect]
     Active Substance: PACLITAXEL
     Indication: Progesterone receptor assay negative
  4. PACLITAXEL [Suspect]
     Active Substance: PACLITAXEL
     Indication: EGFR gene overexpression
  5. DOXORUBICIN [Suspect]
     Active Substance: DOXORUBICIN
     Indication: Invasive ductal breast carcinoma
     Route: 065
  6. DOXORUBICIN [Suspect]
     Active Substance: DOXORUBICIN
     Indication: Oestrogen receptor assay negative
  7. DOXORUBICIN [Suspect]
     Active Substance: DOXORUBICIN
     Indication: Progesterone receptor assay negative
  8. DOXORUBICIN [Suspect]
     Active Substance: DOXORUBICIN
     Indication: EGFR gene overexpression
  9. CYCLOPHOSPHAMIDE [Suspect]
     Active Substance: CYCLOPHOSPHAMIDE
     Indication: Invasive ductal breast carcinoma
     Route: 065
  10. CYCLOPHOSPHAMIDE [Suspect]
     Active Substance: CYCLOPHOSPHAMIDE
     Indication: Oestrogen receptor assay negative
  11. CYCLOPHOSPHAMIDE [Suspect]
     Active Substance: CYCLOPHOSPHAMIDE
     Indication: Progesterone receptor assay negative
  12. CYCLOPHOSPHAMIDE [Suspect]
     Active Substance: CYCLOPHOSPHAMIDE
     Indication: EGFR gene overexpression

REACTIONS (1)
  - Sarcoid-like reaction [Unknown]
